FAERS Safety Report 9973596 (Version 2)
Quarter: 2014Q1

REPORT INFORMATION
  Report Type: Spontaneous
  Country: RU (occurrence: RU)
  Receive Date: 20140306
  Receipt Date: 20140306
  Transmission Date: 20141002
  Serious: Yes (Other)
  Sender: FDA-Public Use
  Company Number: RU-BAYER-2014-010818

PATIENT
  Age: 36 Year
  Sex: Female

DRUGS (6)
  1. MIRENA [Suspect]
     Indication: UTERINE LEIOMYOMA
     Dosage: 20 MCG/24HR, CONT
     Route: 015
     Dates: start: 200812, end: 201401
  2. MIRENA [Suspect]
     Indication: UTERINE LEIOMYOMA
     Dosage: 20 MCG/24HR, CONT
     Route: 015
     Dates: start: 20140121
  3. MYDOCALM [Concomitant]
  4. MEXIDOL [Concomitant]
  5. SIRDALUD [Concomitant]
  6. MELOXICAM [Concomitant]

REACTIONS (7)
  - Device use error [None]
  - Post procedural haemorrhage [Recovered/Resolved]
  - Off label use [None]
  - Pre-existing condition improved [None]
  - Nervousness [Recovering/Resolving]
  - Musculoskeletal discomfort [Recovered/Resolved]
  - Osteochondrosis [Recovered/Resolved]
